FAERS Safety Report 25446930 (Version 1)
Quarter: 2025Q2

REPORT INFORMATION
  Report Type: Spontaneous
  Country: US (occurrence: US)
  Receive Date: 20250617
  Receipt Date: 20250617
  Transmission Date: 20250716
  Serious: No
  Sender: CIPLA
  Company Number: US-CIPLA LTD.-2025US06985

PATIENT

DRUGS (2)
  1. ALBUTEROL [Suspect]
     Active Substance: ALBUTEROL
     Indication: Product used for unknown indication
     Route: 065
     Dates: start: 20240810
  2. ALBUTEROL [Suspect]
     Active Substance: ALBUTEROL
     Route: 065
     Dates: start: 20250602

REACTIONS (5)
  - Malaise [Not Recovered/Not Resolved]
  - Device delivery system issue [Unknown]
  - Drug dose omission by device [Unknown]
  - Product packaging quantity issue [Unknown]
  - Device issue [Unknown]

NARRATIVE: CASE EVENT DATE: 20250601
